FAERS Safety Report 6840020-0 (Version None)
Quarter: 2010Q3

REPORT INFORMATION
  Report Type: 
  Country: None (occurrence: None)
  Receive Date: 20100714
  Receipt Date: 20100706
  Transmission Date: 20110219
  Serious: Yes (Death)
  Sender: FDA-Public Use
  Company Number: CO-ROCHE-710786

PATIENT
  Sex: Male

DRUGS (1)
  1. CELLCEPT [Suspect]
     Indication: LIVER TRANSPLANT
     Dosage: FRQUENCY: QD
     Route: 048
     Dates: start: 20090622, end: 20100409

REACTIONS (1)
  - CARDIOPULMONARY FAILURE [None]
